FAERS Safety Report 9975450 (Version 1)
Quarter: 2014Q1

REPORT INFORMATION
  Report Type: Report from Study
  Country: US (occurrence: US)
  Receive Date: 20140306
  Receipt Date: 20140306
  Transmission Date: 20141002
  Serious: Yes (Hospitalization)
  Sender: FDA-Public Use
  Company Number: US-ABBVIE-13P-163-1155672-00

PATIENT
  Age: 60 Year
  Sex: Male

DRUGS (11)
  1. HUMIRA [Suspect]
     Indication: ANKYLOSING SPONDYLITIS
     Dates: start: 20130813
  2. DILAUDID [Concomitant]
     Indication: PAIN
     Dosage: BY MOUTH, AS NEEDED
  3. MELOXICAM [Concomitant]
     Indication: PAIN
     Dosage: BY MOUTH
  4. LORATADINE [Concomitant]
     Indication: SEASONAL ALLERGY
     Dosage: 10 MG BY MOUTH EVERY DAY
  5. METFORMIN [Concomitant]
     Indication: DIABETES MELLITUS
     Dosage: 500 MG BY MOUTH DAILY
  6. DIOVAN [Concomitant]
     Indication: HYPERTENSION
     Dosage: 160 MG BY MOUTH DAILY
  7. TOPROL [Concomitant]
     Indication: HYPERTENSION
     Dosage: 50 MG BY MOUTH DAILY
  8. DILTIAZEM [Concomitant]
     Indication: HYPERTENSION
     Dosage: 180/24 BY MOUTH DAILY
  9. SYNTHROID [Concomitant]
     Indication: HYPOTHYROIDISM
     Dosage: 200 MCG BY MOUTH DAILY
  10. ASA [Concomitant]
     Indication: CARDIOVASCULAR EVENT PROPHYLAXIS
     Dosage: 81 MG BY MOUTH DAILY
  11. RANITIDINE [Concomitant]
     Indication: PROPHYLAXIS AGAINST GASTROINTESTINAL ULCER
     Dosage: 150 MG BY MOUTH DAILY

REACTIONS (1)
  - Urinary tract infection [Recovering/Resolving]
